FAERS Safety Report 5505379-5 (Version None)
Quarter: 2007Q4

REPORT INFORMATION
  Report Type: 
  Country: None (occurrence: None)
  Receive Date: 20071102
  Receipt Date: 20071025
  Transmission Date: 20080405
  Serious: Yes (Death, Hospitalization, Other)
  Sender: FDA-Public Use
  Company Number: US-ELI_LILLY_AND_COMPANY-US200710000585

PATIENT
  Sex: Female
  Weight: 61.678 kg

DRUGS (15)
  1. ALIMTA [Suspect]
     Indication: NON-SMALL CELL LUNG CANCER METASTATIC
     Dosage: UNK, UNK
     Dates: start: 20070815
  2. NAVELBINE [Concomitant]
     Indication: NON-SMALL CELL LUNG CANCER METASTATIC
     Dates: start: 20070424
  3. PREVACID [Concomitant]
     Dosage: 30 MG, 2/D
     Route: 048
     Dates: start: 20070522
  4. IRON SULFATETHIAMIN COMPOUND TAB [Concomitant]
     Dosage: UNK, DAILY (1/D)
     Route: 048
     Dates: start: 20070606
  5. FLEXERIL [Concomitant]
     Indication: PAIN IN EXTREMITY
     Dosage: 5 MG, OTHER
     Route: 048
     Dates: start: 20070727
  6. FOLIC ACID [Concomitant]
     Dosage: 1 MG, DAILY (1/D)
     Route: 048
     Dates: start: 20070809
  7. DECADRON                                /CAN/ [Concomitant]
     Dosage: 4 MG, DAILY (1/D)
     Route: 048
     Dates: start: 20070809
  8. OXYCONTIN [Concomitant]
     Indication: MUSCULOSKELETAL PAIN
     Dosage: 40 MG, 2/D
     Route: 048
     Dates: start: 20070405
  9. OXYCONTIN [Concomitant]
     Dosage: 40 MG, 3/D
     Route: 048
     Dates: start: 20070719
  10. ESTROPIPATE [Concomitant]
     Dosage: 3 MG, DAILY (1/D)
     Route: 048
     Dates: start: 19970101
  11. ALEVE [Concomitant]
     Dosage: UNK, OTHER
     Route: 048
     Dates: start: 20070124
  12. RAMELTEON [Concomitant]
     Indication: INSOMNIA
     Dosage: 8 MG, OTHER
     Route: 048
     Dates: start: 20070719
  13. PERCOCET [Concomitant]
     Indication: PAIN
     Dosage: UNK, AS NEEDED
     Route: 048
     Dates: start: 20070405
  14. VITAMIN B-12 [Concomitant]
     Dosage: 100 UG, UNK
     Route: 058
     Dates: start: 20070809
  15. NORVASC [Concomitant]
     Dosage: 5 MG, DAILY (1/D)
     Route: 048
     Dates: start: 20070118

REACTIONS (6)
  - ANAEMIA [None]
  - DEHYDRATION [None]
  - HYPOKALAEMIA [None]
  - MALIGNANT NEOPLASM PROGRESSION [None]
  - ORAL INTAKE REDUCED [None]
  - WEIGHT DECREASED [None]
